FAERS Safety Report 5461044-4 (Version None)
Quarter: 2007Q3

REPORT INFORMATION
  Report Type: 
  Country: None (occurrence: None)
  Receive Date: 20070810
  Receipt Date: 20061221
  Transmission Date: 20080115
  Serious: Yes (Other)
  Sender: FDA-Public Use
  Company Number: 200614476GDS

PATIENT
  Sex: Female

DRUGS (2)
  1. APROTININ [Suspect]
     Indication: SPINAL FUSION SURGERY
     Dosage: 1 ML, ONCE, INTRAVENOUS; 200 ML, ONCE, INTRAVENOUS; 50 ML, Q1HR, INTRAVENOUS
     Route: 042
  2. LOSARTAN POTASSIUM [Concomitant]

REACTIONS (4)
  - BLOOD CREATININE INCREASED [None]
  - BLOOD UREA INCREASED [None]
  - RENAL FAILURE ACUTE [None]
  - URINE OUTPUT DECREASED [None]
